FAERS Safety Report 20206577 (Version 1)
Quarter: 2021Q4

REPORT INFORMATION
  Report Type: Spontaneous
  Country: US (occurrence: None)
  Receive Date: 20211219
  Receipt Date: 20211219
  Transmission Date: 20220303
  Serious: Yes (Disabling)
  Sender: FDA-Public Use
  Company Number: None

PATIENT
  Age: 30 Year
  Sex: Female
  Weight: 56.61 kg

DRUGS (1)
  1. TRINTELLIX [Suspect]
     Active Substance: VORTIOXETINE HYDROBROMIDE
     Indication: Major depression
     Route: 048
     Dates: start: 20211201, end: 20211218

REACTIONS (6)
  - Illness [None]
  - Abdominal pain upper [None]
  - Decreased activity [None]
  - Feeling hot [None]
  - Vomiting [None]
  - Flatulence [None]

NARRATIVE: CASE EVENT DATE: 20211218
